FAERS Safety Report 5068785-1 (Version None)
Quarter: 2006Q3

REPORT INFORMATION
  Report Type: 
  Country: None (occurrence: None)
  Receive Date: 20060802
  Receipt Date: 20060331
  Transmission Date: 20061208
  Serious: No
  Sender: FDA-Public Use
  Company Number: US-BRISTOL-MYERS SQUIBB COMPANY-13332739

PATIENT
  Age: 74 Year
  Sex: Female
  Weight: 68 kg

DRUGS (5)
  1. COUMADIN [Suspect]
     Indication: ATRIAL FIBRILLATION
     Dosage: DURATION: 4 YEARS, INCREASED TO 7.5MG DAILY X 6 DAYS AND 5MG X 1 DAY (MON), AND CURRENTLY: 7.5MG/D
  2. COUMADIN [Suspect]
     Indication: CARDIAC PACEMAKER INSERTION
     Dosage: DURATION: 4 YEARS, INCREASED TO 7.5MG DAILY X 6 DAYS AND 5MG X 1 DAY (MON), AND CURRENTLY: 7.5MG/D
  3. SYNTHROID [Concomitant]
  4. LIPITOR [Concomitant]
  5. VITAMINS [Concomitant]

REACTIONS (1)
  - INTERNATIONAL NORMALISED RATIO DECREASED [None]
